FAERS Safety Report 19070190 (Version 1)
Quarter: 2021Q1

REPORT INFORMATION
  Report Type: Report from Study
  Country: US (occurrence: US)
  Receive Date: 20210329
  Receipt Date: 20210329
  Transmission Date: 20210420
  Serious: Yes (Other)
  Sender: FDA-Public Use
  Company Number: US-INCYTE CORPORATION-2020IN008607

PATIENT

DRUGS (1)
  1. JAKAFI [Suspect]
     Active Substance: RUXOLITINIB
     Indication: POLYCYTHAEMIA VERA
     Dosage: 15 MILLIGRAM, QD
     Route: 048

REACTIONS (7)
  - Fall [Unknown]
  - Contusion [Unknown]
  - Impaired healing [Unknown]
  - Skin cancer [Unknown]
  - Skin abrasion [Unknown]
  - Skin lesion [Unknown]
  - Limb injury [Unknown]
